FAERS Safety Report 19458057 (Version 1)
Quarter: 2021Q2

REPORT INFORMATION
  Report Type: Spontaneous
  Country: US (occurrence: US)
  Receive Date: 20210624
  Receipt Date: 20210624
  Transmission Date: 20210717
  Serious: No
  Sender: FDA-Public Use
  Company Number: US-PERRIGO-20US015233

PATIENT
  Age: 56 Year
  Sex: Female
  Weight: 65.76 kg

DRUGS (4)
  1. AZELASTINE HYDROCHLORIDE. [Suspect]
     Active Substance: AZELASTINE HYDROCHLORIDE
     Indication: SINUS CONGESTION
     Dosage: 411 MCG IN EACH NOSTRIL, QD
     Route: 045
     Dates: start: 20201010, end: 20201015
  2. ARMOUR THYROID [Concomitant]
     Active Substance: THYROID, PORCINE
     Indication: HYPOTHYROIDISM
     Dosage: UNK
     Route: 065
     Dates: start: 2015
  3. AZELASTINE HYDROCHLORIDE. [Suspect]
     Active Substance: AZELASTINE HYDROCHLORIDE
     Dosage: 411 MCG IN EACH NOSTRIL, QD
     Route: 045
     Dates: start: 20201015, end: 20201020
  4. AZELASTINE HYDROCHLORIDE. [Suspect]
     Active Substance: AZELASTINE HYDROCHLORIDE
     Dosage: 411 MCG IN EACH NOSTRIL, QD
     Route: 045
     Dates: start: 20201020, end: 20201020

REACTIONS (3)
  - Condition aggravated [Recovering/Resolving]
  - Sinus headache [Recovered/Resolved]
  - Ear pain [Recovered/Resolved]

NARRATIVE: CASE EVENT DATE: 20201010
